FAERS Safety Report 10230341 (Version 1)
Quarter: 2014Q2

REPORT INFORMATION
  Report Type: Spontaneous
  Country: US (occurrence: None)
  Receive Date: 20140610
  Receipt Date: 20140610
  Transmission Date: 20141212
  Serious: Yes (Disabling)
  Sender: FDA-Public Use
  Company Number: None

PATIENT
  Age: 26 Year
  Sex: Male

DRUGS (1)
  1. OXYCONTIN [Suspect]
     Indication: INJURY
     Route: 048

REACTIONS (4)
  - Renal pain [None]
  - Product formulation issue [None]
  - Product substitution issue [None]
  - Drug effect decreased [None]
